FAERS Safety Report 14812706 (Version 7)
Quarter: 2018Q4

REPORT INFORMATION
  Report Type: Spontaneous
  Country: US (occurrence: US)
  Receive Date: 20180425
  Receipt Date: 20181115
  Transmission Date: 20190204
  Serious: Yes (Life-Threatening, Hospitalization, Other)
  Sender: FDA-Public Use
  Company Number: US-BIOGEN-2018BI00562055

PATIENT
  Sex: Female

DRUGS (1)
  1. TYSABRI [Suspect]
     Active Substance: NATALIZUMAB
     Indication: MULTIPLE SCLEROSIS
     Dosage: INFUSED OVER 1 HOUR
     Route: 042
     Dates: start: 20170613, end: 20171018

REACTIONS (10)
  - Decreased appetite [Recovered/Resolved]
  - Chemical burn [Unknown]
  - White blood cell count increased [Unknown]
  - Vomiting [Recovered/Resolved]
  - Renal failure [Not Recovered/Not Resolved]
  - Recurrent cancer [Recovered/Resolved]
  - Weight decreased [Unknown]
  - Vulval cancer stage III [Recovered/Resolved]
  - Decreased immune responsiveness [Not Recovered/Not Resolved]
  - Hypersensitivity [Recovered/Resolved with Sequelae]

NARRATIVE: CASE EVENT DATE: 2017
